FAERS Safety Report 5522135-2 (Version None)
Quarter: 2007Q4

REPORT INFORMATION
  Report Type: 
  Country: None (occurrence: None)
  Receive Date: 20071115
  Receipt Date: 20071029
  Transmission Date: 20080405
  Serious: Yes (Hospitalization)
  Sender: FDA-Public Use
  Company Number: 8027825

PATIENT
  Age: 16 Year
  Sex: Female
  Weight: 60 kg

DRUGS (3)
  1. EQUASYM [Suspect]
     Dosage: 60 MG 1/D PO
     Route: 048
     Dates: end: 20071016
  2. EQUASYM [Suspect]
     Dosage: 60 MG TWICE PO
     Route: 048
     Dates: start: 20071017, end: 20071017
  3. EQUASYM [Suspect]
     Dosage: 60 MG 1/D PO
     Route: 048
     Dates: start: 20071018

REACTIONS (5)
  - ACCIDENTAL OVERDOSE [None]
  - DIZZINESS [None]
  - HEADACHE [None]
  - TREMOR [None]
  - VERTIGO [None]
